FAERS Safety Report 7631189-9 (Version None)
Quarter: 2011Q3

REPORT INFORMATION
  Report Type: 
  Country: None (occurrence: None)
  Receive Date: 20110725
  Receipt Date: 20110712
  Transmission Date: 20111222
  Serious: Yes (Other)
  Sender: FDA-Public Use
  Company Number: US-JNJFOC-20110602858

PATIENT
  Sex: Female

DRUGS (5)
  1. TOPAMAX [Suspect]
     Indication: VERTIGO
     Route: 048
     Dates: start: 20110511
  2. ASTELIN [Concomitant]
  3. VALIUM [Concomitant]
  4. ZYRTEC [Concomitant]
  5. TOPAMAX [Suspect]
     Indication: MIGRAINE
     Route: 048
     Dates: start: 20110511

REACTIONS (6)
  - EYE MOVEMENT DISORDER [None]
  - NAUSEA [None]
  - HEART RATE IRREGULAR [None]
  - VISION BLURRED [None]
  - IMPAIRED DRIVING ABILITY [None]
  - PALPITATIONS [None]
